FAERS Safety Report 7200296-7 (Version None)
Quarter: 2010Q4

REPORT INFORMATION
  Report Type: 
  Country: None (occurrence: None)
  Receive Date: 20101228
  Receipt Date: 20101217
  Transmission Date: 20110411
  Serious: Yes (Hospitalization)
  Sender: FDA-Public Use
  Company Number: B0689859A

PATIENT
  Sex: Male

DRUGS (14)
  1. VALACYCLOVIR HYDROCHLORIDE (VALTREX) [Suspect]
     Indication: PRODUCT USED FOR UNKNOWN INDICATION
     Dosage: 500MG PER DAY
     Route: 048
     Dates: start: 20100901, end: 20101118
  2. DEPAKENE [Suspect]
     Indication: PRODUCT USED FOR UNKNOWN INDICATION
     Route: 048
     Dates: start: 20100901, end: 20101119
  3. VAXIGRIP [Suspect]
     Indication: PROPHYLAXIS
     Route: 058
     Dates: start: 20101112, end: 20101112
  4. SPECIAFOLDINE [Concomitant]
  5. PENTASA [Concomitant]
  6. KEPPRA [Concomitant]
  7. EFFEXOR [Concomitant]
  8. NEXIUM [Concomitant]
  9. PLAVIX [Concomitant]
  10. TAMSULOSIN HCL [Concomitant]
  11. MALOCIDE [Concomitant]
  12. LEXOMIL [Concomitant]
  13. IMOVANE [Concomitant]
  14. BISOPROLOL [Concomitant]

REACTIONS (10)
  - ACUTE RESPIRATORY DISTRESS SYNDROME [None]
  - AGITATION [None]
  - CONFUSIONAL STATE [None]
  - DISORIENTATION [None]
  - ENCEPHALOPATHY [None]
  - HEADACHE [None]
  - HYPERAMMONAEMIA [None]
  - HYPONATRAEMIA [None]
  - LUNG INFECTION [None]
  - VOMITING [None]
